FAERS Safety Report 17293286 (Version 1)
Quarter: 2020Q1

REPORT INFORMATION
  Report Type: Spontaneous
  Country: US (occurrence: US)
  Receive Date: 20200119
  Receipt Date: 20200119
  Transmission Date: 20200409
  Serious: Yes (Other)
  Sender: FDA-Public Use
  Company Number: None

PATIENT
  Age: 41 Year
  Sex: Female
  Weight: 76.5 kg

DRUGS (6)
  1. ABILIFY [Suspect]
     Active Substance: ARIPIPRAZOLE
     Indication: INSOMNIA
     Route: 048
     Dates: start: 20180401, end: 20180430
  2. ZYRTEC [Concomitant]
     Active Substance: CETIRIZINE HYDROCHLORIDE
  3. OMEPRAZOLE. [Concomitant]
     Active Substance: OMEPRAZOLE
  4. VITAMIN D [Concomitant]
     Active Substance: VITAMIN D NOS
  5. METOPROLOL SYNTHROID [Concomitant]
  6. SKYLA [Concomitant]
     Active Substance: LEVONORGESTREL

REACTIONS (6)
  - Fear [None]
  - Feeling abnormal [None]
  - Suicidal ideation [None]
  - Movement disorder [None]
  - Insomnia [None]
  - Panic reaction [None]

NARRATIVE: CASE EVENT DATE: 20180430
